FAERS Safety Report 8392715-8 (Version None)
Quarter: 2012Q2

REPORT INFORMATION
  Report Type: 
  Country: None (occurrence: None)
  Receive Date: 20120529
  Receipt Date: 20120517
  Transmission Date: 20120825
  Serious: Yes (Other)
  Sender: FDA-Public Use
  Company Number: US-ELI_LILLY_AND_COMPANY-US201103006869

PATIENT
  Sex: Female

DRUGS (4)
  1. HUMALOG [Suspect]
     Dosage: UNK
     Dates: start: 20010101
  2. HUMALOG MIX 75/25 [Suspect]
  3. CYMBALTA [Suspect]
     Indication: FIBROMYALGIA
     Dosage: 30 MG, BID
     Dates: start: 20120322
  4. CYMBALTA [Suspect]
     Dosage: 60 MG, QD

REACTIONS (7)
  - CARDIAC FAILURE CONGESTIVE [None]
  - SWELLING [None]
  - NOCTURIA [None]
  - INSOMNIA [None]
  - FATIGUE [None]
  - SOMNOLENCE [None]
  - DYSPNOEA [None]
